FAERS Safety Report 8152919-6 (Version None)
Quarter: 2012Q1

REPORT INFORMATION
  Report Type: 
  Country: None (occurrence: None)
  Receive Date: 20120221
  Receipt Date: 20120203
  Transmission Date: 20120608
  Serious: Yes (Other)
  Sender: FDA-Public Use
  Company Number: US-RB-034474-12

PATIENT
  Age: 65 Year
  Sex: Male

DRUGS (1)
  1. MUCINEX [Suspect]
     Indication: PRODUCT USED FOR UNKNOWN INDICATION
     Dosage: STARTED A MONTH AGO, 1-2 600MG TABLETS/DAY
     Route: 048

REACTIONS (7)
  - EPISTAXIS [None]
  - INCORRECT DRUG ADMINISTRATION DURATION [None]
  - LETHARGY [None]
  - NAUSEA [None]
  - MUCOSAL HAEMORRHAGE [None]
  - URTICARIA [None]
  - HEADACHE [None]
